FAERS Safety Report 12347268 (Version 1)
Quarter: 2016Q2

REPORT INFORMATION
  Report Type: Spontaneous
  Country: IT (occurrence: IT)
  Receive Date: 20160509
  Receipt Date: 20160509
  Transmission Date: 20160815
  Serious: Yes (Other)
  Sender: FDA-Public Use
  Company Number: IT-ELI_LILLY_AND_COMPANY-IT201605002059

PATIENT

DRUGS (2)
  1. RADIOTHERAPY [Concomitant]
     Active Substance: RADIATION THERAPY
     Indication: BILE DUCT ADENOCARCINOMA
     Dosage: UNK, UNKNOWN
     Route: 065
  2. GEMCITABINE HYDROCHLORIDE. [Suspect]
     Active Substance: GEMCITABINE HYDROCHLORIDE
     Indication: BILE DUCT ADENOCARCINOMA
     Dosage: 1000 MG/M2, WEEKLY (1/W)
     Route: 042

REACTIONS (1)
  - Gastrointestinal toxicity [Unknown]
